FAERS Safety Report 14839492 (Version 1)
Quarter: 2018Q2

REPORT INFORMATION
  Report Type: Spontaneous
  Country: CA (occurrence: CA)
  Receive Date: 20180502
  Receipt Date: 20180502
  Transmission Date: 20180711
  Serious: Yes (Disabling)
  Sender: FDA-Public Use
  Company Number: CA-TEVA-2018-CA-886679

PATIENT
  Age: 50 Year
  Sex: Male

DRUGS (5)
  1. TEGRETOL [Concomitant]
     Active Substance: CARBAMAZEPINE
  2. NOVO-OXCARBAZEPINE [Suspect]
     Active Substance: OXCARBAZEPINE
     Indication: SEIZURE
     Route: 048
  3. NOVO-OXCARBAZEPINE [Suspect]
     Active Substance: OXCARBAZEPINE
     Indication: ANGER
  4. NOVO-OXCARBAZEPINE [Suspect]
     Active Substance: OXCARBAZEPINE
     Indication: AGGRESSION
  5. MULTIVITAMINS WITH MINERALS [Concomitant]
     Active Substance: MINERALS\VITAMINS

REACTIONS (3)
  - Product substitution issue [Unknown]
  - Drug ineffective [Unknown]
  - Abnormal behaviour [Unknown]
